FAERS Safety Report 25354107 (Version 1)
Quarter: 2025Q2

REPORT INFORMATION
  Report Type: Spontaneous
  Country: US (occurrence: US)
  Receive Date: 20250523
  Receipt Date: 20250523
  Transmission Date: 20250716
  Serious: No
  Sender: SANOFI AVENTIS
  Company Number: US-SA-2025SA147600

PATIENT
  Sex: Female

DRUGS (25)
  1. DUPIXENT [Suspect]
     Active Substance: DUPILUMAB
     Indication: Type 2 diabetes mellitus
     Dosage: 300 MG, QOW
     Route: 058
  2. AZITHROMYCIN [Concomitant]
     Active Substance: AZITHROMYCIN
  3. ACYCLOVIR [Concomitant]
     Active Substance: ACYCLOVIR
  4. ALLOPURINOL [Concomitant]
     Active Substance: ALLOPURINOL
  5. AMOXICILLIN [Concomitant]
     Active Substance: AMOXICILLIN
  6. ASPIRIN [Concomitant]
     Active Substance: ASPIRIN
  7. AZITHROMYCIN [Concomitant]
     Active Substance: AZITHROMYCIN
  8. BISOPROLOL [Concomitant]
     Active Substance: BISOPROLOL
  9. BUDESONIDE [Concomitant]
     Active Substance: BUDESONIDE
  10. ERYTHROMYCIN [Concomitant]
     Active Substance: ERYTHROMYCIN
  11. FLUCONAZOLE [Concomitant]
     Active Substance: FLUCONAZOLE
  12. FLUTICASONE [Concomitant]
     Active Substance: FLUTICASONE
  13. GABAPENTIN [Concomitant]
     Active Substance: GABAPENTIN
  14. GLIPIZIDE [Concomitant]
     Active Substance: GLIPIZIDE
  15. HYDROCHLOROTHIAZIDE [Concomitant]
     Active Substance: HYDROCHLOROTHIAZIDE
  16. IPRATROPIUM [Concomitant]
     Active Substance: IPRATROPIUM
  17. LEVOTHYROXINE [Concomitant]
     Active Substance: LEVOTHYROXINE
  18. LORATADINE [Concomitant]
     Active Substance: LORATADINE
  19. MAGNESIUM [Concomitant]
     Active Substance: MAGNESIUM
  20. MONTELUKAST [Concomitant]
     Active Substance: MONTELUKAST
  21. OMEPRAZOLE [Concomitant]
     Active Substance: OMEPRAZOLE
  22. PRAVASTATIN [Concomitant]
     Active Substance: PRAVASTATIN
  23. PREDNISONE [Concomitant]
     Active Substance: PREDNISONE
  24. SPIRIVA [Concomitant]
     Active Substance: TIOTROPIUM BROMIDE MONOHYDRATE
  25. VITAMIN D [Concomitant]
     Active Substance: VITAMIN D NOS

REACTIONS (2)
  - Pain in extremity [Unknown]
  - Product use in unapproved indication [Unknown]
